FAERS Safety Report 5523169-4 (Version None)
Quarter: 2007Q4

REPORT INFORMATION
  Report Type: 
  Country: None (occurrence: None)
  Receive Date: 20071118
  Receipt Date: 20071107
  Transmission Date: 20080405
  Serious: Yes (Life-Threatening, Hospitalization)
  Sender: FDA-Public Use
  Company Number: 2007SP022748

PATIENT
  Age: 66 Year
  Sex: Male
  Weight: 54.79 kg

DRUGS (14)
  1. PEG-INTRON [Suspect]
     Indication: HEPATITIS C
     Dosage: 0.4 ML;QW;SC, 120 MCG;QW;SC
     Route: 058
     Dates: start: 20070619, end: 20070719
  2. PEG-INTRON [Suspect]
     Indication: HEPATITIS C
     Dosage: 0.4 ML;QW;SC, 120 MCG;QW;SC
     Route: 058
     Dates: start: 20070517
  3. REBETOL [Suspect]
     Indication: HEPATITIS C
     Dosage: BID;PO, 400 MG;BID;PO
     Route: 048
     Dates: start: 20070619, end: 20070716
  4. REBETOL [Suspect]
     Indication: HEPATITIS C
     Dosage: BID;PO, 400 MG;BID;PO
     Route: 048
     Dates: start: 20070517
  5. LEXAPRO [Concomitant]
  6. NEXIUM [Concomitant]
  7. LASIX [Concomitant]
  8. CELLCEPT [Concomitant]
  9. PREDNISONE TAB [Concomitant]
  10. CYCLOSPORINE [Concomitant]
  11. NALTREXONE HYDROCHLORIDE [Concomitant]
  12. PROGRAF [Concomitant]
  13. ASPIRIN [Concomitant]
  14. MULTI-VITAMIN [Concomitant]

REACTIONS (12)
  - AUTOIMMUNE HEPATITIS [None]
  - BILIARY TRACT DISORDER [None]
  - BLOOD GLUCOSE INCREASED [None]
  - CHRONIC HEPATIC FAILURE [None]
  - COMPLICATIONS OF TRANSPLANTED LIVER [None]
  - HEPATIC NEOPLASM MALIGNANT [None]
  - INJURY [None]
  - LIVER TRANSPLANT [None]
  - LIVER TRANSPLANT REJECTION [None]
  - PROCEDURAL COMPLICATION [None]
  - SMALL INTESTINAL PERFORATION [None]
  - SURGICAL PROCEDURE REPEATED [None]
